FAERS Safety Report 9108498 (Version 3)
Quarter: 2013Q3

REPORT INFORMATION
  Report Type: Spontaneous
  Country: US (occurrence: US)
  Receive Date: 20130222
  Receipt Date: 20130815
  Transmission Date: 20140515
  Serious: Yes (Hospitalization, Other)
  Sender: FDA-Public Use
  Company Number: US-009507513-1202USA03510

PATIENT
  Sex: Female

DRUGS (3)
  1. FOSAMAX [Suspect]
     Indication: OSTEOPOROSIS
     Dosage: 70 MG, QW
     Route: 048
     Dates: start: 1996, end: 200601
  2. FOSAMAX PLUS D [Suspect]
     Indication: OSTEOPOROSIS
     Dosage: 70/2800 MG/IU QW
     Route: 048
     Dates: start: 20060116, end: 2006
  3. ALENDRONATE SODIUM [Suspect]
     Indication: OSTEOPOROSIS
     Dosage: 70 MG, QW
     Route: 048
     Dates: start: 20080618, end: 20100710

REACTIONS (23)
  - Femur fracture [Unknown]
  - Fall [Unknown]
  - Intramedullary rod insertion [Unknown]
  - Postoperative fever [Unknown]
  - Removal of internal fixation [Unknown]
  - Femur fracture [Unknown]
  - Femur fracture [Unknown]
  - Internal fixation of fracture [Unknown]
  - Open reduction of fracture [Unknown]
  - Low turnover osteopathy [Unknown]
  - Colon operation [Unknown]
  - Blood cholesterol increased [Unknown]
  - Hernia repair [Unknown]
  - Radius fracture [Unknown]
  - Anaemia [Unknown]
  - Knee operation [Unknown]
  - Hypertension [Unknown]
  - Rotator cuff syndrome [Unknown]
  - Bursitis [Unknown]
  - Haemangioma of bone [Unknown]
  - Enthesopathy [Unknown]
  - Gastrooesophageal reflux disease [Unknown]
  - Pain in extremity [Unknown]
